FAERS Safety Report 24788240 (Version 1)
Quarter: 2024Q4

REPORT INFORMATION
  Report Type: Spontaneous
  Country: US (occurrence: US)
  Receive Date: 20241230
  Receipt Date: 20241230
  Transmission Date: 20250114
  Serious: Yes (Hospitalization, Disabling)
  Sender: AUROBINDO
  Company Number: US-AUROBINDO-AUR-APL-2024-062475

PATIENT
  Age: 32 Year
  Sex: Male
  Weight: 83.8 kg

DRUGS (32)
  1. OLANZAPINE [Suspect]
     Active Substance: OLANZAPINE
     Indication: Antipsychotic therapy
     Dosage: 40 MILLIGRAM
     Route: 065
  2. OLANZAPINE [Suspect]
     Active Substance: OLANZAPINE
     Indication: Schizoaffective disorder bipolar type
     Dosage: 50 MILLIGRAM
     Route: 065
  3. OLANZAPINE [Suspect]
     Active Substance: OLANZAPINE
     Indication: Attention deficit hyperactivity disorder
     Dosage: 37.5 MILLIGRAM (ON ADMISSION DAY 82)
     Route: 065
  4. OLANZAPINE [Suspect]
     Active Substance: OLANZAPINE
     Indication: Autism spectrum disorder
     Dosage: 75 MILLIGRAM (ON ADMISSION DAY 10)
     Route: 065
  5. OLANZAPINE [Suspect]
     Active Substance: OLANZAPINE
     Dosage: 112.5 MILLIGRAM (ON ADMISSION DAY 117)
     Route: 065
  6. OLANZAPINE [Suspect]
     Active Substance: OLANZAPINE
     Dosage: 162.5 MILLIGRAM (ON ADMISSION DAY 133)
     Route: 065
  7. ZIPRASIDONE HYDROCHLORIDE [Suspect]
     Active Substance: ZIPRASIDONE HYDROCHLORIDE
     Indication: Schizoaffective disorder bipolar type
     Dosage: 40 MILLIGRAM, TWO TIMES A DAY
     Route: 065
  8. ZIPRASIDONE HYDROCHLORIDE [Suspect]
     Active Substance: ZIPRASIDONE HYDROCHLORIDE
     Indication: Attention deficit hyperactivity disorder
  9. ZIPRASIDONE HYDROCHLORIDE [Suspect]
     Active Substance: ZIPRASIDONE HYDROCHLORIDE
     Indication: Autism spectrum disorder
  10. ESCITALOPRAM [Suspect]
     Active Substance: ESCITALOPRAM OXALATE
     Indication: Autism spectrum disorder
     Dosage: 10 MILLIGRAM, ONCE A DAY
     Route: 065
  11. ESCITALOPRAM [Suspect]
     Active Substance: ESCITALOPRAM OXALATE
     Indication: Schizoaffective disorder bipolar type
  12. ESCITALOPRAM [Suspect]
     Active Substance: ESCITALOPRAM OXALATE
     Indication: Attention deficit hyperactivity disorder
  13. QUETIAPINE [Suspect]
     Active Substance: QUETIAPINE
     Indication: Schizoaffective disorder bipolar type
     Dosage: 100 MILLIGRAM, ONCE A DAY (NIGHTLY)
     Route: 065
  14. QUETIAPINE [Suspect]
     Active Substance: QUETIAPINE
     Indication: Attention deficit hyperactivity disorder
  15. QUETIAPINE [Suspect]
     Active Substance: QUETIAPINE
     Indication: Autism spectrum disorder
  16. DIVALPROEX SODIUM [Suspect]
     Active Substance: DIVALPROEX SODIUM
     Indication: Schizoaffective disorder bipolar type
     Dosage: 1250 MILLIGRAM, ONCE A DAY
     Route: 065
  17. DIVALPROEX SODIUM [Suspect]
     Active Substance: DIVALPROEX SODIUM
     Indication: Attention deficit hyperactivity disorder
  18. DIVALPROEX SODIUM [Suspect]
     Active Substance: DIVALPROEX SODIUM
     Indication: Autism spectrum disorder
  19. PERPHENAZINE [Suspect]
     Active Substance: PERPHENAZINE
     Indication: Schizoaffective disorder bipolar type
     Dosage: 36 MILLIGRAM, ONCE A DAY
     Route: 065
  20. PERPHENAZINE [Suspect]
     Active Substance: PERPHENAZINE
     Indication: Attention deficit hyperactivity disorder
  21. PERPHENAZINE [Suspect]
     Active Substance: PERPHENAZINE
     Indication: Autism spectrum disorder
  22. BENZTROPINE [Suspect]
     Active Substance: BENZTROPINE
     Indication: Schizoaffective disorder bipolar type
     Dosage: 1 MILLIGRAM, TWO TIMES A DAY
     Route: 065
  23. BENZTROPINE [Suspect]
     Active Substance: BENZTROPINE
     Indication: Attention deficit hyperactivity disorder
  24. BENZTROPINE [Suspect]
     Active Substance: BENZTROPINE
     Indication: Autism spectrum disorder
  25. FLUOXETINE [Concomitant]
     Active Substance: FLUOXETINE HYDROCHLORIDE
     Indication: Schizoaffective disorder bipolar type
     Dosage: 20 MILLIGRAM, ONCE A DAY
     Route: 065
  26. FLUOXETINE [Concomitant]
     Active Substance: FLUOXETINE HYDROCHLORIDE
     Indication: Attention deficit hyperactivity disorder
     Dosage: 10 MILLIGRAM, ONCE A DAY
     Route: 065
  27. FLUOXETINE [Concomitant]
     Active Substance: FLUOXETINE HYDROCHLORIDE
     Indication: Autism spectrum disorder
  28. ARIPIPRAZOLE [Concomitant]
     Active Substance: ARIPIPRAZOLE
     Indication: Schizoaffective disorder bipolar type
     Dosage: 5 MILLIGRAM, ONCE A DAY
     Route: 065
  29. ARIPIPRAZOLE [Concomitant]
     Active Substance: ARIPIPRAZOLE
     Indication: Attention deficit hyperactivity disorder
  30. ARIPIPRAZOLE [Concomitant]
     Active Substance: ARIPIPRAZOLE
     Indication: Autism spectrum disorder
  31. AMLODIPINE [Concomitant]
     Active Substance: AMLODIPINE BESYLATE
     Indication: Product used for unknown indication
     Dosage: 10 MILLIGRAM, ONCE A DAY
     Route: 065
  32. POLYETHYLENE GLYCOL [Concomitant]
     Active Substance: POLYETHYLENE GLYCOL
     Indication: Product used for unknown indication
     Dosage: 17 MILLIGRAM, ONCE A DAY
     Route: 065

REACTIONS (5)
  - Extrapyramidal disorder [Recovered/Resolved]
  - Fall [Unknown]
  - Therapy partial responder [Unknown]
  - Antipsychotic drug level increased [Unknown]
  - Sedation [Unknown]
